FAERS Safety Report 10651828 (Version 1)
Quarter: 2014Q4

REPORT INFORMATION
  Report Type: Spontaneous
  Country: IN (occurrence: None)
  Receive Date: 20141211
  Receipt Date: 20141211
  Transmission Date: 20150529
  Serious: Yes (Other)
  Sender: FDA-Public Use
  Company Number: 2014HINLIT1030

PATIENT
  Age: 35 Year
  Sex: Male

DRUGS (10)
  1. ISOINIAZID (ISONIAZID) [Concomitant]
  2. OFLOXACIN (OFLOXACIN) (OFLOXACIN) [Concomitant]
     Active Substance: OFLOXACIN
  3. ZIDOVUDINE (ZIDOVUDINE) UNKNIOWN [Suspect]
     Active Substance: ZIDOVUDINE
     Indication: HIV INFECTION
  4. LAMIVUDINE (LAMIVUDINE) [Concomitant]
     Active Substance: LAMIVUDINE
  5. EFAVIRENZ (EFAVIENZ) [Concomitant]
  6. ETHAMBUTOL [Concomitant]
     Active Substance: ETHAMBUTOL HYDROCHLORIDE
  7. CLOFAZIMINE (CLOFAZIMINE) [Concomitant]
  8. RIFAMPICIN(RIFAMPICIN) [Concomitant]
  9. DIETHYLCARBAMAZINE (DIETHYLCARBAMAZINE) [Concomitant]
  10. THALIDOMIDE (THALIDOMIDE) [Concomitant]
     Active Substance: THALIDOMIDE

REACTIONS (11)
  - Bone marrow failure [None]
  - Lymph node tuberculosis [None]
  - Lepromatous leprosy [None]
  - Rash erythematous [None]
  - Arthralgia [None]
  - Hypoaesthesia [None]
  - Filariasis [None]
  - Anaemia [None]
  - Cachexia [None]
  - Acquired immunodeficiency syndrome [None]
  - Haematotoxicity [None]
